FAERS Safety Report 13662148 (Version 1)
Quarter: 2017Q2

REPORT INFORMATION
  Report Type: Spontaneous
  Country: GB (occurrence: GB)
  Receive Date: 20170616
  Receipt Date: 20170616
  Transmission Date: 20170830
  Serious: Yes (Other)
  Sender: FDA-Public Use
  Company Number: GB-ABBVIE-17P-167-2010614-00

PATIENT
  Age: 85 Year
  Sex: Male
  Weight: 80 kg

DRUGS (5)
  1. CLARITHROMYCIN. [Suspect]
     Active Substance: CLARITHROMYCIN
     Indication: PNEUMONIA
     Dosage: 500 MG, BID
     Route: 048
     Dates: start: 20170508
  2. WARFARIN [Suspect]
     Active Substance: WARFARIN
     Indication: ATRIAL FIBRILLATION
     Dosage: VARIABLE AS PER INR
     Route: 048
     Dates: start: 20170509, end: 20170509
  3. WARFARIN [Suspect]
     Active Substance: WARFARIN
     Dosage: VARIABLE AS PER INR
     Route: 048
     Dates: start: 20170510, end: 20170510
  4. WARFARIN [Suspect]
     Active Substance: WARFARIN
     Dosage: VARIABLE AS PER INR
     Route: 048
     Dates: start: 20170513
  5. AMOXICILLIN. [Suspect]
     Active Substance: AMOXICILLIN
     Indication: PNEUMONIA
     Dosage: 625 MG, TID
     Route: 048
     Dates: start: 20170507

REACTIONS (1)
  - International normalised ratio increased [Recovered/Resolved]

NARRATIVE: CASE EVENT DATE: 20170509
